FAERS Safety Report 22278383 (Version 1)
Quarter: 2023Q2

REPORT INFORMATION
  Report Type: Spontaneous
  Country: FR (occurrence: FR)
  Receive Date: 20230503
  Receipt Date: 20230503
  Transmission Date: 20230722
  Serious: Yes (Other)
  Sender: FDA-Public Use
  Company Number: None

PATIENT
  Age: 72 Year
  Sex: Female
  Weight: 91 kg

DRUGS (14)
  1. CIPROFLOXACIN [Suspect]
     Active Substance: CIPROFLOXACIN
     Indication: Infection
     Route: 048
     Dates: start: 20210923, end: 20230316
  2. TEDIZOLID PHOSPHATE [Concomitant]
     Active Substance: TEDIZOLID PHOSPHATE
     Indication: Infection
     Dosage: UNK
     Route: 048
     Dates: start: 20210511, end: 20210723
  3. TEDIZOLID PHOSPHATE [Concomitant]
     Active Substance: TEDIZOLID PHOSPHATE
     Indication: Infection
     Dosage: UNK
     Route: 048
     Dates: start: 20210901, end: 20210923
  4. TEDIZOLID PHOSPHATE [Concomitant]
     Active Substance: TEDIZOLID PHOSPHATE
     Indication: Infection
     Dosage: 200 MG, QD
     Route: 048
     Dates: start: 202111
  5. AMLODIPINE BESYLATE [Concomitant]
     Active Substance: AMLODIPINE BESYLATE
     Dosage: 5 MG
  6. FLUCONAZOLE [Concomitant]
     Active Substance: FLUCONAZOLE
     Indication: Infection
     Dosage: 800 MG, QD
     Route: 048
     Dates: start: 20211007, end: 20211008
  7. FLUCONAZOLE [Concomitant]
     Active Substance: FLUCONAZOLE
     Indication: Infection
     Dosage: 400 MG, QD
     Route: 048
     Dates: start: 20211009, end: 202111
  8. FLUCONAZOLE [Concomitant]
     Active Substance: FLUCONAZOLE
     Indication: Infection
     Dosage: 600 MG, QD
     Route: 048
     Dates: start: 202111, end: 202112
  9. FLUCONAZOLE [Concomitant]
     Active Substance: FLUCONAZOLE
     Indication: Infection
     Dosage: 400 MG, QD
     Route: 048
     Dates: start: 202112, end: 20220223
  10. FLUCONAZOLE [Concomitant]
     Active Substance: FLUCONAZOLE
     Indication: Infection
     Dosage: 200 MG, QD
     Route: 048
     Dates: start: 20220223
  11. HYDROCHLOROTHIAZIDE [Concomitant]
     Active Substance: HYDROCHLOROTHIAZIDE
     Dosage: 12.5 MG
  12. DAFALGAN [Concomitant]
     Active Substance: ACETAMINOPHEN
  13. PERINDOPRIL [Concomitant]
     Active Substance: PERINDOPRIL
     Dosage: 8 MG
  14. ZOPICLONE [Concomitant]
     Active Substance: ZOPICLONE

REACTIONS (2)
  - Rotator cuff syndrome [Not Recovered/Not Resolved]
  - Rotator cuff syndrome [Not Recovered/Not Resolved]

NARRATIVE: CASE EVENT DATE: 20230308
